FAERS Safety Report 17226589 (Version 1)
Quarter: 2020Q1

REPORT INFORMATION
  Report Type: Report from Study
  Country: US (occurrence: US)
  Receive Date: 20200102
  Receipt Date: 20200102
  Transmission Date: 20200409
  Serious: Yes (Other)
  Sender: FDA-Public Use
  Company Number: US-EXELIXIS-CABO-19026374

PATIENT
  Sex: Female

DRUGS (2)
  1. CABOMETYX [Suspect]
     Active Substance: CABOZANTINIB S-MALATE
     Indication: RENAL CANCER
     Dosage: 60 MG
     Dates: start: 201907
  2. CABOMETYX [Suspect]
     Active Substance: CABOZANTINIB S-MALATE
     Dosage: 40 MG, QD
     Dates: start: 201910

REACTIONS (7)
  - Fatigue [Unknown]
  - Blood magnesium decreased [Unknown]
  - Taste disorder [Unknown]
  - Diarrhoea [Unknown]
  - Nausea [Unknown]
  - Carotid artery occlusion [Unknown]
  - Blood sodium decreased [Unknown]
